FAERS Safety Report 9887866 (Version 1)
Quarter: 2013Q4

REPORT INFORMATION
  Report Type: Spontaneous
  Country: US (occurrence: None)
  Receive Date: 20131223
  Receipt Date: 20131223
  Transmission Date: 20140711
  Serious: No
  Sender: FDA-Public Use
  Company Number: 217280LEO

PATIENT
  Age: 64 Year
  Sex: Male

DRUGS (3)
  1. PICATO (0.015%, GEL) [Suspect]
     Indication: ACTINIC KERATOSIS
     Route: 061
     Dates: start: 20120409, end: 20120411
  2. EFFUDEX (FLUOROURACIL) [Concomitant]
  3. CARAC (FLUOROURACIL) [Concomitant]

REACTIONS (3)
  - Burning sensation [None]
  - Application site erythema [None]
  - Drug administered at inappropriate site [None]
